FAERS Safety Report 11224208 (Version 1)
Quarter: 2015Q2

REPORT INFORMATION
  Report Type: Spontaneous
  Country: US (occurrence: US)
  Receive Date: 20150629
  Receipt Date: 20150629
  Transmission Date: 20150821
  Serious: No
  Sender: FDA-Public Use
  Company Number: US-ASTRAZENECA-2015SE60582

PATIENT
  Age: 57 Year
  Sex: Male
  Weight: 131.5 kg

DRUGS (2)
  1. SEVERAL MEDICATION [Concomitant]
     Active Substance: UNSPECIFIED INGREDIENT
  2. BYDUREON [Suspect]
     Active Substance: EXENATIDE
     Indication: TYPE 2 DIABETES MELLITUS
     Route: 058
     Dates: start: 201502

REACTIONS (3)
  - Weight decreased [Unknown]
  - Product quality issue [Unknown]
  - Visual impairment [Not Recovered/Not Resolved]
